FAERS Safety Report 21818517 (Version 3)
Quarter: 2023Q1

REPORT INFORMATION
  Report Type: Spontaneous
  Country: US (occurrence: US)
  Receive Date: 20230104
  Receipt Date: 20230227
  Transmission Date: 20230418
  Serious: No
  Sender: FDA-Public Use
  Company Number: US-PFIZER INC-202200097997

PATIENT
  Age: 55 Year
  Sex: Female

DRUGS (2)
  1. PREMARIN [Suspect]
     Active Substance: ESTROGENS, CONJUGATED
     Dosage: INSERT 0.5 G 3 TIMES A WEEK BY VAGINAL ROUTE AT BEDTIME
     Route: 067
  2. PREMARIN [Suspect]
     Active Substance: ESTROGENS, CONJUGATED
     Dosage: 1 G, 2X/WEEK
     Route: 067

REACTIONS (8)
  - Somnolence [Unknown]
  - Galactorrhoea [Unknown]
  - Tachyphrenia [Unknown]
  - Cardiac disorder [Unknown]
  - Palpitations [Unknown]
  - Tremor [Unknown]
  - Off label use [Unknown]
  - Off label use [Unknown]
